FAERS Safety Report 4533839-2 (Version None)
Quarter: 2004Q4

REPORT INFORMATION
  Report Type: 
  Country: None (occurrence: None)
  Receive Date: 20041214
  Receipt Date: 20041011
  Transmission Date: 20050328
  Serious: No
  Sender: FDA-Public Use
  Company Number: USA041080714

PATIENT
  Sex: Male

DRUGS (4)
  1. CIALIS [Suspect]
     Dosage: 20 MG
  2. ATROVENT [Concomitant]
  3. PROSTADA [Concomitant]
  4. REGLAN [Concomitant]

REACTIONS (1)
  - DRUG INEFFECTIVE [None]
